FAERS Safety Report 8276705-1 (Version None)
Quarter: 2012Q2

REPORT INFORMATION
  Report Type: 
  Country: None (occurrence: None)
  Receive Date: 20120412
  Receipt Date: 20120412
  Transmission Date: 20120825
  Serious: No
  Sender: FDA-Public Use
  Company Number: None

PATIENT
  Age: 86 Year
  Sex: Male

DRUGS (2)
  1. AVELOX [Suspect]
     Indication: DEHYDRATION
     Dosage: 400.0 MG
     Route: 041
     Dates: start: 20120108, end: 20120108
  2. AVELOX [Suspect]
     Indication: LEUKOCYTOSIS
     Dosage: 400.0 MG
     Route: 041
     Dates: start: 20120108, end: 20120108

REACTIONS (1)
  - INFUSION SITE ERYTHEMA [None]
